FAERS Safety Report 15311834 (Version 1)
Quarter: 2018Q4

REPORT INFORMATION
  Report Type: Spontaneous
  Country: IT (occurrence: IT)
  Receive Date: 20180823
  Receipt Date: 20180823
  Transmission Date: 20190204
  Serious: Yes (Hospitalization, Other)
  Sender: FDA-Public Use
  Company Number: IT-PFIZER INC-2018333595

PATIENT
  Age: 41 Year
  Sex: Male

DRUGS (2)
  1. TAVOR (LORAZEPAM) [Suspect]
     Active Substance: LORAZEPAM
     Dosage: UNK
     Route: 048
     Dates: start: 20180619, end: 20180619
  2. ORAMORPH [Suspect]
     Active Substance: MORPHINE SULFATE
     Dosage: UNK
     Route: 048
     Dates: start: 20180619, end: 20180619

REACTIONS (7)
  - Suicide attempt [Recovering/Resolving]
  - Agitation [Recovering/Resolving]
  - Affect lability [Recovering/Resolving]
  - Nausea [Recovering/Resolving]
  - Drug abuse [Recovering/Resolving]
  - Vomiting [Recovering/Resolving]
  - Abdominal pain upper [Recovering/Resolving]

NARRATIVE: CASE EVENT DATE: 20180619
